FAERS Safety Report 20298785 (Version 2)
Quarter: 2022Q1

REPORT INFORMATION
  Report Type: Report from Study
  Country: US (occurrence: US)
  Receive Date: 20220105
  Receipt Date: 20220106
  Transmission Date: 20220423
  Serious: Yes (Hospitalization)
  Sender: FDA-Public Use
  Company Number: US-ABBVIE-22K-163-4220484-00

PATIENT
  Sex: Female
  Weight: 87.8 kg

DRUGS (10)
  1. VENCLEXTA [Suspect]
     Active Substance: VENETOCLAX
     Indication: Acute myeloid leukaemia
     Dosage: DAY 1 TAKE 4 TABLET(S) BY MOUTH EVERY DAY
     Route: 048
  2. VENCLEXTA [Suspect]
     Active Substance: VENETOCLAX
     Dosage: DAY 2
     Route: 048
  3. VENCLEXTA [Suspect]
     Active Substance: VENETOCLAX
     Dosage: DAY 3
     Route: 048
  4. VENCLEXTA [Suspect]
     Active Substance: VENETOCLAX
     Dosage: DAY 4
     Route: 048
  5. VENCLEXTA [Suspect]
     Active Substance: VENETOCLAX
     Route: 048
  6. ACYCLOVIR [Concomitant]
     Active Substance: ACYCLOVIR
     Indication: Product used for unknown indication
     Dosage: 400 MG
  7. CIPRO [Concomitant]
     Active Substance: CIPROFLOXACIN HYDROCHLORIDE
     Indication: Product used for unknown indication
     Dosage: 500 MG
  8. NOXAFIL [Concomitant]
     Active Substance: POSACONAZOLE
     Indication: Product used for unknown indication
     Dosage: 300 MG
  9. POTASSIUM CHLORIDE [Concomitant]
     Active Substance: POTASSIUM CHLORIDE
     Indication: Product used for unknown indication
     Dosage: 20 MEQ
  10. NORVASC [Concomitant]
     Active Substance: AMLODIPINE BESYLATE
     Indication: Product used for unknown indication
     Dosage: 10 MG

REACTIONS (2)
  - Illness [Unknown]
  - Abdominal pain upper [Unknown]
